FAERS Safety Report 7725260-0 (Version None)
Quarter: 2011Q3

REPORT INFORMATION
  Report Type: 
  Country: None (occurrence: None)
  Receive Date: 20110902
  Receipt Date: 20110827
  Transmission Date: 20111222
  Serious: Yes (Hospitalization)
  Sender: FDA-Public Use
  Company Number: US-BIOGENIDEC-2011BI020074

PATIENT
  Age: 59 Year
  Sex: Male

DRUGS (9)
  1. METFORMIN [Concomitant]
     Indication: DIABETES MELLITUS
     Dates: start: 19990101
  2. GABAPENTIN [Concomitant]
     Indication: HYPOAESTHESIA
     Dates: start: 20070101
  3. AVONEX [Suspect]
     Indication: MULTIPLE SCLEROSIS
     Route: 030
     Dates: start: 20091209
  4. LEXAPRO [Concomitant]
  5. PRIMIDONE [Concomitant]
     Indication: MULTIPLE SCLEROSIS
     Dates: start: 20070101
  6. TOPAMAX [Concomitant]
     Indication: TREMOR
     Dates: start: 20070101
  7. LANTUS [Concomitant]
     Indication: DIABETES MELLITUS
     Dates: start: 19990101
  8. GLIMEPIRIDE [Concomitant]
     Indication: DIABETES MELLITUS
     Dates: start: 19990101
  9. SIMVASTATIN [Concomitant]
     Indication: BLOOD CHOLESTEROL INCREASED
     Dates: start: 19990101

REACTIONS (2)
  - ARTHROPATHY [None]
  - INJECTION SITE PAIN [None]
